FAERS Safety Report 10665675 (Version 2)
Quarter: 2014Q4

REPORT INFORMATION
  Report Type: Spontaneous
  Country: US (occurrence: US)
  Receive Date: 20141219
  Receipt Date: 20141219
  Transmission Date: 20150529
  Serious: No
  Sender: FDA-Public Use
  Company Number: US-SHIONOGI, INC-2014000914

PATIENT
  Age: 53 Year
  Sex: Female

DRUGS (1)
  1. OSPHENA [Suspect]
     Active Substance: OSPEMIFENE
     Indication: OFF LABEL USE
     Dosage: 60 MG, EVERY MORNING WITH FOOD
     Route: 048
     Dates: start: 201407

REACTIONS (4)
  - Therapeutic response unexpected [Unknown]
  - Orgasm abnormal [Unknown]
  - Off label use [Unknown]
  - Labelled drug-drug interaction medication error [Unknown]
